FAERS Safety Report 4366555-0 (Version None)
Quarter: 2004Q2

REPORT INFORMATION
  Report Type: 
  Country: None (occurrence: None)
  Receive Date: 20040524
  Receipt Date: 20040514
  Transmission Date: 20050107
  Serious: Yes (Death)
  Sender: FDA-Public Use
  Company Number: 0410010

PATIENT
  Age: 0 Year
  Sex: Male
  Weight: 4.2 kg

DRUGS (1)
  1. NITISINONE/ COMPASS USE [Suspect]
     Indication: AMINO ACID METABOLISM DISORDER
     Dosage: 6 MG A DAY, ORAL
     Route: 048
     Dates: start: 20030326, end: 20030620

REACTIONS (1)
  - DRUG INEFFECTIVE [None]
